FAERS Safety Report 6092327-5 (Version None)
Quarter: 2009Q1

REPORT INFORMATION
  Report Type: 
  Country: None (occurrence: None)
  Receive Date: 20090225
  Receipt Date: 20090214
  Transmission Date: 20090719
  Serious: Yes (Other)
  Sender: FDA-Public Use
  Company Number: NO-BAXTER-2009BH001080

PATIENT
  Age: 64 Year
  Sex: Female

DRUGS (36)
  1. HOLOXAN BAXTER [Suspect]
     Indication: LEIOMYOSARCOMA
     Route: 065
     Dates: start: 20081210, end: 20081210
  2. HOLOXAN BAXTER [Suspect]
     Route: 065
     Dates: start: 20081210, end: 20081210
  3. HOLOXAN BAXTER [Suspect]
     Route: 065
     Dates: start: 20081210, end: 20081210
  4. HOLOXAN BAXTER [Suspect]
     Route: 065
     Dates: start: 20081229, end: 20081229
  5. HOLOXAN BAXTER [Suspect]
     Route: 065
     Dates: start: 20081229, end: 20081229
  6. HOLOXAN BAXTER [Suspect]
     Route: 065
     Dates: start: 20081229, end: 20081229
  7. HOLOXAN BAXTER [Suspect]
     Route: 065
  8. BLEOMYCIN GENERIC [Suspect]
     Indication: LEIOMYOSARCOMA
     Route: 065
  9. CISPLATIN [Suspect]
     Indication: LEIOMYOSARCOMA
     Route: 065
  10. DOXORUBICIN HCL [Suspect]
     Indication: LEIOMYOSARCOMA
     Route: 065
  11. DOXORUBICIN HCL [Suspect]
     Route: 065
     Dates: start: 20081229, end: 20081229
  12. MESNA [Suspect]
     Indication: LEIOMYOSARCOMA
     Route: 065
  13. MESNA [Suspect]
     Route: 065
     Dates: start: 20081229, end: 20081229
  14. SCOPODERM [Concomitant]
     Dates: start: 20081228, end: 20081231
  15. LEVOTHYROXINE SODIUM [Concomitant]
     Dates: start: 20081228, end: 20081231
  16. COAPROVEL [Concomitant]
     Dates: start: 20081228, end: 20081231
  17. ATROVENT [Concomitant]
     Dates: start: 20081228, end: 20081231
  18. ATROVENT [Concomitant]
     Dates: start: 20081228, end: 20081231
  19. SYMBICORT TURBUHALER ^DRACO^ [Concomitant]
     Dates: start: 20081228, end: 20081231
  20. SOMAC [Concomitant]
     Dates: start: 20081228, end: 20081231
  21. KLIOGEST ^NOVO NORDISK^ [Concomitant]
     Dates: start: 20081228, end: 20081231
  22. OXYCONTIN [Concomitant]
     Dates: start: 20081228, end: 20081231
  23. ACETAMINOPHEN [Concomitant]
     Dates: start: 20081228, end: 20081231
  24. PHENERGAN [Concomitant]
     Dates: start: 20081228, end: 20081231
  25. SIMVASTATIN [Concomitant]
     Dates: start: 20081228, end: 20081231
  26. KALEORID [Concomitant]
     Dates: start: 20081228, end: 20081231
  27. SILOXANE [Concomitant]
     Dates: start: 20081228, end: 20081231
  28. OXYNORM [Concomitant]
     Dates: start: 20081228, end: 20081231
  29. DIAZEPAM [Concomitant]
     Dates: start: 20081228, end: 20081231
  30. PROCHLORPERAZINE [Concomitant]
     Indication: NAUSEA
     Dates: start: 20081228, end: 20081231
  31. LACTULOSE [Concomitant]
     Dates: start: 20081228, end: 20081231
  32. AFIPRAN [Concomitant]
     Dates: start: 20081228, end: 20081231
  33. ZOFRAN [Concomitant]
     Dates: start: 20081229, end: 20090101
  34. EMEND [Concomitant]
     Dates: start: 20081229, end: 20081231
  35. DEXAMETHASONE [Concomitant]
     Dates: start: 20081229, end: 20081230
  36. NEULASTA [Concomitant]
     Route: 058
     Dates: start: 20081231, end: 20081231

REACTIONS (7)
  - CRYING [None]
  - ENCEPHALOPATHY [None]
  - FEELING OF DESPAIR [None]
  - MUSCLE SPASMS [None]
  - NAUSEA [None]
  - NEUROTOXICITY [None]
  - RENAL IMPAIRMENT [None]
